FAERS Safety Report 7224544-2 (Version None)
Quarter: 2011Q1

REPORT INFORMATION
  Report Type: 
  Country: None (occurrence: None)
  Receive Date: 20110113
  Receipt Date: 20101229
  Transmission Date: 20110831
  Serious: No
  Sender: FDA-Public Use
  Company Number: US-B.I. PHARMACEUTICALS,INC./RIDGEFIELD-2011-BP-00318BP

PATIENT
  Sex: Male

DRUGS (7)
  1. PRAVASTATIN [Concomitant]
     Indication: BLOOD CHOLESTEROL INCREASED
     Route: 048
  2. AMIODARONE [Concomitant]
     Indication: HEART RATE IRREGULAR
     Dosage: 400 MG
     Route: 048
  3. ATENOLOL [Concomitant]
     Indication: HEART RATE IRREGULAR
     Dosage: 25 MG
     Route: 048
  4. VITAMIN D [Concomitant]
     Route: 048
  5. PRADAXA [Suspect]
     Indication: ATRIAL FIBRILLATION
     Dosage: 300 MG
     Route: 048
     Dates: start: 20101101
  6. PRILOSEC [Concomitant]
     Route: 048
  7. VITAMIN COQ10 [Concomitant]
     Route: 048

REACTIONS (3)
  - FAECES HARD [None]
  - RECTAL HAEMORRHAGE [None]
  - HAEMORRHOIDS [None]
